FAERS Safety Report 5741365-8 (Version None)
Quarter: 2008Q2

REPORT INFORMATION
  Report Type: 
  Country: None (occurrence: None)
  Receive Date: 20080514
  Receipt Date: 20080429
  Transmission Date: 20081010
  Serious: Yes (Hospitalization)
  Sender: FDA-Public Use
  Company Number: S08-CAN-01713-01

PATIENT
  Age: 24 Year
  Sex: Female

DRUGS (2)
  1. ESCITALOPRAM [Suspect]
     Dosage: 10 MG QD PO
     Route: 048
     Dates: start: 20080308, end: 20080406
  2. BIAXIN [Suspect]
     Indication: SINUSITIS
     Dates: start: 20080406, end: 20080410

REACTIONS (8)
  - AGITATION [None]
  - ANXIETY [None]
  - DRUG INTERACTION [None]
  - INSOMNIA [None]
  - MOOD SWINGS [None]
  - PALPITATIONS [None]
  - SINUSITIS [None]
  - THINKING ABNORMAL [None]
